FAERS Safety Report 11467761 (Version 1)
Quarter: 2015Q3

REPORT INFORMATION
  Report Type: Spontaneous
  Country: US (occurrence: None)
  Receive Date: 20150904
  Receipt Date: 20150904
  Transmission Date: 20151125
  Serious: Yes (Life-Threatening)
  Sender: FDA-Public Use
  Company Number: None

PATIENT
  Age: 52 Year
  Sex: Female

DRUGS (4)
  1. NITROFURANTOIN. [Suspect]
     Active Substance: NITROFURANTOIN
     Dates: start: 201204, end: 201403
  2. HCTZ [Concomitant]
     Active Substance: HYDROCHLOROTHIAZIDE
  3. LANTUS [Concomitant]
     Active Substance: INSULIN GLARGINE
  4. DIOVAN [Concomitant]
     Active Substance: VALSARTAN

REACTIONS (10)
  - Hepatic cirrhosis [None]
  - Drug-induced liver injury [None]
  - Autoimmune hepatitis [None]
  - Jaundice [None]
  - Portal hypertension [None]
  - Hepatic necrosis [None]
  - Hepatic fibrosis [None]
  - Hepatic encephalopathy [None]
  - Hepatic neoplasm [None]
  - Liver injury [None]

NARRATIVE: CASE EVENT DATE: 20140320
